FAERS Safety Report 21316406 (Version 1)
Quarter: 2022Q3

REPORT INFORMATION
  Report Type: Spontaneous
  Country: US (occurrence: US)
  Receive Date: 20220910
  Receipt Date: 20220910
  Transmission Date: 20221027
  Serious: Yes (Other)
  Sender: FDA-Public Use
  Company Number: US-AMGEN-USASP2022155629

PATIENT
  Age: 81 Year
  Sex: Female

DRUGS (1)
  1. PROLIA [Suspect]
     Active Substance: DENOSUMAB
     Indication: Osteoporosis
     Dosage: UNK UNK, QMO
     Route: 065
     Dates: start: 2022

REACTIONS (21)
  - Knee operation [Unknown]
  - Neuropathy peripheral [Unknown]
  - Pulmonary fibrosis [Unknown]
  - Lipoma [Unknown]
  - Back pain [Unknown]
  - Throat clearing [Not Recovered/Not Resolved]
  - Erythema [Unknown]
  - Off label use [Unknown]
  - Skin texture abnormal [Unknown]
  - Macule [Unknown]
  - Skin hypertrophy [Unknown]
  - Skin tightness [Unknown]
  - Scab [Unknown]
  - Dilated pores [Unknown]
  - Eye disorder [Unknown]
  - Dysphonia [Not Recovered/Not Resolved]
  - Myalgia [Unknown]
  - Arthralgia [Unknown]
  - Pain [Unknown]
  - Lung opacity [Unknown]
  - Insomnia [Unknown]

NARRATIVE: CASE EVENT DATE: 20220101
